FAERS Safety Report 5006707-X (Version None)
Quarter: 2006Q2

REPORT INFORMATION
  Report Type: 
  Country: None (occurrence: None)
  Receive Date: 20060519
  Receipt Date: 20050601
  Transmission Date: 20061013
  Serious: Yes (Other)
  Sender: FDA-Public Use
  Company Number: PHEH2005US06210

PATIENT
  Age: 75 Year
  Sex: Female

DRUGS (10)
  1. ZOMETA [Suspect]
     Dosage: 4 MG, QMO
     Dates: start: 20051001, end: 20051001
  2. AMLODIPINE BESYLATE [Concomitant]
  3. CALCIUM W/VITAMIN D NOS [Concomitant]
     Dosage: UNK, BID
  4. OMEGA 3 [Concomitant]
  5. MULTIVITAMIN PREPARATIONS WITH OR W/O MINERAL [Concomitant]
     Dosage: ONCE A DAY
  6. ASCORBIC ACID [Concomitant]
  7. CENTRUM SILVER [Concomitant]
  8. TAMOXIFEN CITRATE [Concomitant]
     Dosage: 20 MG/DAY
     Dates: start: 19890101, end: 20030101
  9. ANASTROZOLE [Concomitant]
     Dates: start: 20030101, end: 20040101
  10. AROMASIN [Concomitant]
     Dates: start: 20040101

REACTIONS (19)
  - ABSCESS ORAL [None]
  - ARTHROPATHY [None]
  - BIOPSY MUCOSA ABNORMAL [None]
  - BONE SWELLING [None]
  - COUGH [None]
  - DIARRHOEA [None]
  - DISEASE PROGRESSION [None]
  - DYSPHONIA [None]
  - DYSPNOEA EXERTIONAL [None]
  - FATIGUE [None]
  - FEELING ABNORMAL [None]
  - OSTEITIS [None]
  - OSTEOMYELITIS ACUTE [None]
  - PAIN IN JAW [None]
  - PRIMARY SEQUESTRUM [None]
  - PURULENT DISCHARGE [None]
  - SEQUESTRECTOMY [None]
  - SOFT TISSUE INFECTION [None]
  - STRESS [None]
